FAERS Safety Report 9728381 (Version 2)
Quarter: 2014Q1

REPORT INFORMATION
  Report Type: Report from Study
  Country: CA (occurrence: CA)
  Receive Date: 20131204
  Receipt Date: 20140121
  Transmission Date: 20141002
  Serious: Yes (Other)
  Sender: FDA-Public Use
  Company Number: CA-JNJFOC-20131117200

PATIENT
  Sex: Male
  Weight: 68.2 kg

DRUGS (3)
  1. REMICADE [Suspect]
     Indication: CROHN^S DISEASE
     Route: 042
     Dates: start: 2008
  2. REMICADE [Suspect]
     Indication: CROHN^S DISEASE
     Route: 042
  3. REMICADE [Suspect]
     Indication: CROHN^S DISEASE
     Dosage: 1.0 ML SYRINGE-INJECTION
     Route: 042
     Dates: start: 2009, end: 201311

REACTIONS (2)
  - Small intestinal obstruction [Not Recovered/Not Resolved]
  - Treatment failure [Unknown]
